FAERS Safety Report 26057966 (Version 1)
Quarter: 2025Q4

REPORT INFORMATION
  Report Type: Report from Study
  Country: US (occurrence: US)
  Receive Date: 20251118
  Receipt Date: 20251118
  Transmission Date: 20260117
  Serious: Yes (Other)
  Sender: ALEXION PHARMACEUTICALS
  Company Number: US-AstraZeneca-CH-00991597A

PATIENT
  Sex: Male

DRUGS (2)
  1. BENRALIZUMAB [Suspect]
     Active Substance: BENRALIZUMAB
     Dosage: UNK
     Route: 065
  2. BENRALIZUMAB [Suspect]
     Active Substance: BENRALIZUMAB

REACTIONS (11)
  - Reaction to excipient [Unknown]
  - Nasopharyngitis [Unknown]
  - Cough [Unknown]
  - Arthritis [Unknown]
  - Arthralgia [Unknown]
  - Gastric ulcer [Unknown]
  - Hepatic cancer [Unknown]
  - Rash [Unknown]
  - Post-traumatic stress disorder [Unknown]
  - Dyspnoea [Unknown]
  - Throat irritation [Unknown]
